FAERS Safety Report 7123563-4 (Version None)
Quarter: 2010Q4

REPORT INFORMATION
  Report Type: 
  Country: None (occurrence: None)
  Receive Date: 20101125
  Receipt Date: 20101111
  Transmission Date: 20110411
  Serious: Yes (Other)
  Sender: FDA-Public Use
  Company Number: US-RANBAXY-2010RR-39590

PATIENT
  Sex: Female

DRUGS (7)
  1. FENOFIBRATE [Suspect]
     Indication: PRODUCT USED FOR UNKNOWN INDICATION
     Route: 065
  2. SIMCOR [Concomitant]
     Indication: BLOOD TRIGLYCERIDES INCREASED
     Dosage: 500/20 MG
     Route: 048
     Dates: start: 20101108
  3. SIMCOR [Concomitant]
     Indication: LOW DENSITY LIPOPROTEIN INCREASED
  4. DEPAKOTE [Concomitant]
  5. LEVOTHYROXINE SODIUM [Concomitant]
  6. MOTRIN [Concomitant]
  7. NIASPAN [Concomitant]

REACTIONS (1)
  - ANAPHYLACTIC REACTION [None]
